FAERS Safety Report 19658781 (Version 2)
Quarter: 2021Q3

REPORT INFORMATION
  Report Type: Spontaneous
  Country: US (occurrence: US)
  Receive Date: 20210804
  Receipt Date: 20210813
  Transmission Date: 20211014
  Serious: No
  Sender: FDA-Public Use
  Company Number: US-PFIZER INC-2021770134

PATIENT
  Age: 74 Year
  Sex: Male
  Weight: 86.62 kg

DRUGS (1)
  1. BOSULIF [Suspect]
     Active Substance: BOSUTINIB MONOHYDRATE
     Indication: CHRONIC MYELOID LEUKAEMIA
     Dosage: UNK UNK, DAILY
     Route: 048

REACTIONS (9)
  - Neoplasm progression [Unknown]
  - Nausea [Unknown]
  - Weight decreased [Unknown]
  - Abdominal pain [Unknown]
  - Oedema peripheral [Unknown]
  - Abdominal hernia [Unknown]
  - Amnesia [Unknown]
  - Decreased appetite [Unknown]
  - Red blood cell count decreased [Unknown]
